FAERS Safety Report 6106890-9 (Version None)
Quarter: 2009Q1

REPORT INFORMATION
  Report Type: 
  Country: None (occurrence: None)
  Receive Date: 20090305
  Receipt Date: 20090224
  Transmission Date: 20090719
  Serious: Yes (Other)
  Sender: FDA-Public Use
  Company Number: CERZ-1000532

PATIENT
  Age: 58 Year
  Sex: Female

DRUGS (2)
  1. CEREZYME [Suspect]
     Indication: GAUCHER'S DISEASE
     Dosage: 60 U/KG, INTRAVENOUS
     Route: 042
     Dates: start: 20071201
  2. CHEMOTHERAPEUTICS NOS (CHEMOTHERAPEUTICS NOS) [Suspect]
     Indication: ADENOCARCINOMA
     Dates: start: 20050101

REACTIONS (5)
  - DISEASE PROGRESSION [None]
  - DRUG EFFECT DELAYED [None]
  - DRUG INEFFECTIVE [None]
  - METASTASES TO KIDNEY [None]
  - PANCYTOPENIA [None]
